FAERS Safety Report 6553630-5 (Version None)
Quarter: 2010Q1

REPORT INFORMATION
  Report Type: 
  Country: None (occurrence: None)
  Receive Date: 20100122
  Receipt Date: 20100108
  Transmission Date: 20100710
  Serious: Yes (Hospitalization)
  Sender: FDA-Public Use
  Company Number: 2010SP000091

PATIENT
  Age: 48 Year
  Sex: Female

DRUGS (11)
  1. XOPENEX [Suspect]
     Indication: DYSPNOEA
     Dosage: 90 UG; TID; INHALATION; INHALATION; PRN; INHALATION; QD; INHALATION
     Route: 055
     Dates: start: 20090101, end: 20090101
  2. XOPENEX [Suspect]
     Indication: DYSPNOEA
     Dosage: 90 UG; TID; INHALATION; INHALATION; PRN; INHALATION; QD; INHALATION
     Route: 055
     Dates: end: 20090801
  3. XOPENEX [Suspect]
     Indication: DYSPNOEA
     Dosage: 90 UG; TID; INHALATION; INHALATION; PRN; INHALATION; QD; INHALATION
     Route: 055
     Dates: start: 20090101, end: 20091101
  4. XOPENEX [Suspect]
     Indication: DYSPNOEA
     Dosage: 90 UG; TID; INHALATION; INHALATION; PRN; INHALATION; QD; INHALATION
     Route: 055
     Dates: start: 20100101
  5. PULMOZYME [Concomitant]
  6. ULTRASE /00150201/ [Concomitant]
  7. HUMALOG [Concomitant]
  8. AZITHROMYCIN [Concomitant]
  9. VITAMIN K TAB [Concomitant]
  10. VITAMIN C [Concomitant]
  11. MULTI-VITAMINS [Concomitant]

REACTIONS (5)
  - BURNING SENSATION [None]
  - CYSTIC FIBROSIS [None]
  - H1N1 INFLUENZA [None]
  - HAEMOPTYSIS [None]
  - LUNG DISORDER [None]
